FAERS Safety Report 8009975-5 (Version None)
Quarter: 2011Q4

REPORT INFORMATION
  Report Type: 
  Country: None (occurrence: None)
  Receive Date: 20111221
  Receipt Date: 20111206
  Transmission Date: 20120403
  Serious: Yes (Hospitalization, Other)
  Sender: FDA-Public Use
  Company Number: DSJ-2011-18601

PATIENT
  Age: 8 Decade
  Sex: Female

DRUGS (4)
  1. BENICAR [Suspect]
     Indication: HYPERTENSION
     Dosage: 20;40 MG (20 MG, 1 IN 1 D), PER ORAL
     Route: 048
     Dates: start: 20110101
  2. BENICAR [Suspect]
     Indication: HYPERTENSION
     Dosage: 20;40 MG (20 MG, 1 IN 1 D), PER ORAL
     Route: 048
     Dates: start: 20060101, end: 20060101
  3. BENICAR [Suspect]
     Indication: HYPERTENSION
     Dosage: 20;40 MG (20 MG, 1 IN 1 D), PER ORAL
     Route: 048
     Dates: end: 20110101
  4. METFORMIN HCL [Concomitant]

REACTIONS (3)
  - LUNG DISORDER [None]
  - DRUG INEFFECTIVE [None]
  - RENAL CANCER METASTATIC [None]
